FAERS Safety Report 9109877 (Version 1)
Quarter: 2013Q1

REPORT INFORMATION
  Report Type: Report from Study
  Country: US (occurrence: US)
  Receive Date: 20130222
  Receipt Date: 20130222
  Transmission Date: 20140127
  Serious: Yes (Hospitalization)
  Sender: FDA-Public Use
  Company Number: US-CELGENEUS-163-C4047-12092221

PATIENT
  Age: 68 None
  Sex: Male

DRUGS (5)
  1. CC-4047 [Suspect]
     Indication: PLASMA CELL MYELOMA
     Dosage: 4 MILLIGRAM
     Route: 048
     Dates: start: 20120628, end: 20120913
  2. BLOOD [Concomitant]
     Indication: TRANSFUSION
     Route: 041
  3. PREDNISONE [Concomitant]
     Indication: GRAFT VERSUS HOST DISEASE
     Dosage: 5 MILLIGRAM
     Route: 065
  4. CYCLOSPORINE [Concomitant]
     Indication: GRAFT VERSUS HOST DISEASE
     Dosage: 300 MILLIGRAM
     Route: 065
  5. AMIODARONE [Concomitant]
     Indication: ATRIAL FIBRILLATION
     Dosage: 400 MILLIGRAM
     Route: 065

REACTIONS (3)
  - Cholangitis [Unknown]
  - Septic shock [Unknown]
  - Pneumonia [Unknown]
